FAERS Safety Report 21570396 (Version 4)
Quarter: 2023Q2

REPORT INFORMATION
  Report Type: Spontaneous
  Country: US (occurrence: US)
  Receive Date: 20221109
  Receipt Date: 20230403
  Transmission Date: 20230722
  Serious: Yes (Hospitalization, Other)
  Sender: FDA-Public Use
  Company Number: US-BRISTOL-MYERS SQUIBB COMPANY-2022-132466

PATIENT
  Age: 60 Year
  Sex: Male
  Weight: 92.98 kg

DRUGS (3)
  1. REVLIMID [Suspect]
     Active Substance: LENALIDOMIDE
     Indication: Plasma cell myeloma
     Dosage: DAILY ON DAYS 1-21 EVERY 28 DAYS
     Route: 048
     Dates: start: 20220822
  2. REVLIMID [Suspect]
     Active Substance: LENALIDOMIDE
     Dosage: FREQUENCY EVERY OTHER DAY
     Route: 048
  3. REVLIMID [Suspect]
     Active Substance: LENALIDOMIDE
     Dosage: D 1-21 Q 28 DAYS (DAY 1-21 EVERY 28 DAYS)
     Route: 048
     Dates: start: 20220822

REACTIONS (9)
  - Cellulitis [Recovering/Resolving]
  - Arrhythmia [Not Recovered/Not Resolved]
  - COVID-19 [Recovered/Resolved]
  - Localised infection [Recovered/Resolved]
  - Staphylococcal infection [Not Recovered/Not Resolved]
  - Blood potassium decreased [Recovering/Resolving]
  - Device malfunction [Not Recovered/Not Resolved]
  - Off label use [Unknown]
  - Infection [Recovering/Resolving]

NARRATIVE: CASE EVENT DATE: 20221103
